FAERS Safety Report 10551278 (Version 2)
Quarter: 2015Q1

REPORT INFORMATION
  Report Type: Spontaneous
  Country: US (occurrence: None)
  Receive Date: 20141020
  Receipt Date: 20150120
  Transmission Date: 20150720
  Serious: No
  Sender: FDA-Public Use
  Company Number: AEGR000696

PATIENT
  Age: 57 Year
  Sex: Male
  Weight: 73.9 kg

DRUGS (11)
  1. PROVENTIL HFA ( SALBUTAMOL) AEROSOL ( SPRAY AND INHALATION) [Concomitant]
  2. OMEGA 3 ( FISH OIL) [Concomitant]
  3. SINGULAIR [Concomitant]
     Active Substance: MONTELUKAST SODIUM
  4. VENTOLIN ( SALIBUTAMOL SULFATE) [Concomitant]
  5. PROCARDIA ( NIFEDIPINE) [Concomitant]
  6. LYRICA ( PREGABALIN) [Concomitant]
  7. SYMBICORT ( BUDESONIDE, FORMOTEROL FUMARATE) AEROSOL ( SPRAY AND INHALATION) [Concomitant]
  8. NITROSTAT ( GLYCERYL TRINITRATE) [Concomitant]
  9. JUXTAPID [Suspect]
     Active Substance: LOMITAPIDE MESYLATE
     Indication: TYPE IIA HYPERLIPIDAEMIA
     Route: 048
     Dates: start: 20140325, end: 20140413
  10. ISOSORBIDE MONONITRATE. [Concomitant]
     Active Substance: ISOSORBIDE MONONITRATE
  11. CO-ENZYME Q 10 ( UBIDECARENONE) [Concomitant]

REACTIONS (4)
  - Biliary dilatation [None]
  - Abdominal distension [None]
  - Flatulence [None]
  - Dyspepsia [None]

NARRATIVE: CASE EVENT DATE: 201403
